FAERS Safety Report 17571611 (Version 2)
Quarter: 2020Q1

REPORT INFORMATION
  Report Type: Spontaneous
  Country: CA (occurrence: CA)
  Receive Date: 20200323
  Receipt Date: 20200327
  Transmission Date: 20200409
  Serious: Yes (Hospitalization)
  Sender: FDA-Public Use
  Company Number: CA-CELGENEUS-CAN-20200201399

PATIENT
  Age: 79 Year
  Sex: Male

DRUGS (22)
  1. EVENING PRIMROSE [Concomitant]
     Indication: INJECTION SITE REACTION
     Dosage: 1-2 DROPS
     Route: 061
     Dates: start: 20180510
  2. FOLIC ACID. [Concomitant]
     Active Substance: FOLIC ACID
     Indication: ANAEMIA PROPHYLAXIS
     Dosage: 400 MICROGRAM
     Route: 048
     Dates: start: 201802
  3. COLACE [Concomitant]
     Active Substance: DOCUSATE SODIUM
     Indication: CONSTIPATION PROPHYLAXIS
     Dosage: 200 MILLIGRAM
     Route: 048
     Dates: start: 20180510
  4. BENADRYL [Concomitant]
     Active Substance: DIPHENHYDRAMINE HYDROCHLORIDE
     Indication: PROPHYLAXIS
     Dosage: 50 MILLIGRAM
     Route: 041
     Dates: start: 20180515
  5. ONDANSETRON [Concomitant]
     Active Substance: ONDANSETRON
     Dosage: 8 MILLIGRAM
     Route: 048
     Dates: start: 201806
  6. TYLENOL WITH CODEINE [Concomitant]
     Active Substance: ACETAMINOPHEN\CODEINE PHOSPHATE
     Indication: PAIN
     Dosage: 2 TABLET
     Route: 048
     Dates: start: 20200102
  7. CRESTOR [Concomitant]
     Active Substance: ROSUVASTATIN CALCIUM
     Indication: HYPERLIPIDAEMIA
     Dosage: 10 MILLIGRAM
     Route: 048
     Dates: start: 2012
  8. BENADRYL [Concomitant]
     Active Substance: DIPHENHYDRAMINE HYDROCHLORIDE
     Dosage: 12.5 MILLIGRAM
     Route: 048
     Dates: start: 20190911
  9. LIDOCAINE. [Concomitant]
     Active Substance: LIDOCAINE
     Indication: BIOPSY BONE MARROW
     Dosage: 2 PERCENT
     Route: 058
     Dates: start: 20180507
  10. SENOKOT [Concomitant]
     Active Substance: SENNOSIDES
     Indication: CONSTIPATION PROPHYLAXIS
     Dosage: 1-2 TABLETS
     Route: 048
     Dates: start: 20180510
  11. NYSTATIN. [Concomitant]
     Active Substance: NYSTATIN
     Indication: PROPHYLAXIS
     Dosage: 200000 IU (INTERNATIONAL UNIT)
     Route: 048
     Dates: start: 20180626
  12. VENETOCLAX. [Concomitant]
     Active Substance: VENETOCLAX
     Indication: ACUTE MYELOID LEUKAEMIA
     Route: 065
  13. AMLODIPINE [Concomitant]
     Active Substance: AMLODIPINE BESYLATE
     Indication: HYPERTENSION
     Dosage: 10 MILLIGRAM
     Route: 048
     Dates: start: 2012
  14. LAX-A-DAY [Concomitant]
     Indication: CONSTIPATION PROPHYLAXIS
     Dosage: 17 GRAM
     Route: 048
     Dates: start: 20180510
  15. ACETAMINOPHEN. [Concomitant]
     Active Substance: ACETAMINOPHEN
     Indication: TOOTHACHE
     Dosage: 650 MILLIGRAM
     Route: 048
     Dates: start: 20180511
  16. TRANEXAMIC ACID. [Concomitant]
     Active Substance: TRANEXAMIC ACID
     Indication: EPISTAXIS
     Dosage: 4500 MILLIGRAM
     Route: 048
     Dates: start: 20180626
  17. GLYCEROL [Concomitant]
     Active Substance: GLYCERIN
     Indication: CONSTIPATION
     Dosage: 2.34 GRAM
     Route: 054
     Dates: start: 20180714
  18. VIDAZA [Suspect]
     Active Substance: AZACITIDINE
     Indication: ACUTE MYELOID LEUKAEMIA
     Dosage: 75 MILLIGRAM/SQ. METER
     Route: 058
     Dates: start: 20180510
  19. VIAGRA [Concomitant]
     Active Substance: SILDENAFIL CITRATE
     Indication: ERECTILE DYSFUNCTION
     Dosage: 100 MILLIGRAM
     Route: 048
     Dates: start: 2012
  20. ONDANSETRON [Concomitant]
     Active Substance: ONDANSETRON
     Indication: PROPHYLAXIS OF NAUSEA AND VOMITING
     Dosage: 8 MILLIGRAM
     Route: 048
     Dates: start: 20180510
  21. TOZELLIS [Concomitant]
     Indication: DRY MOUTH
     Dosage: 30 MILLILITER
     Route: 048
     Dates: start: 20180417
  22. AMPHOJEL [Concomitant]
     Active Substance: ALUMINUM HYDROXIDE
     Indication: RENAL DISORDER
     Route: 048
     Dates: start: 201807

REACTIONS (1)
  - Wound [Recovered/Resolved]

NARRATIVE: CASE EVENT DATE: 20200129
